FAERS Safety Report 8808090 (Version 3)
Quarter: 2013Q2

REPORT INFORMATION
  Report Type: Spontaneous
  Country: US (occurrence: US)
  Receive Date: 20120925
  Receipt Date: 20130617
  Transmission Date: 20140414
  Serious: Yes (Death)
  Sender: FDA-Public Use
  Company Number: US-ROCHE-1103828

PATIENT
  Sex: Male

DRUGS (8)
  1. AVASTIN [Suspect]
     Indication: LUNG NEOPLASM MALIGNANT
     Dosage: 1 DOSE
     Route: 065
  2. AVASTIN [Suspect]
     Indication: MALIGNANT RESPIRATORY TRACT NEOPLASM
  3. CARBOPLATIN [Concomitant]
     Dosage: 1 DOSE
     Route: 065
  4. TAXOL [Concomitant]
     Dosage: 1 DOSE
     Route: 065
  5. RADIATION THERAPY [Concomitant]
  6. TEMODAR [Concomitant]
  7. PROCRIT [Concomitant]
  8. NEULASTA [Concomitant]

REACTIONS (1)
  - Metastases to central nervous system [Fatal]
